FAERS Safety Report 12154109 (Version 1)
Quarter: 2016Q1

REPORT INFORMATION
  Report Type: Spontaneous
  Country: US (occurrence: US)
  Receive Date: 20160307
  Receipt Date: 20160307
  Transmission Date: 20160526
  Serious: No
  Sender: FDA-Public Use
  Company Number: US-BRISTOL-MYERS SQUIBB COMPANY-BMS-2016-016326

PATIENT
  Sex: Female
  Weight: 45 kg

DRUGS (1)
  1. BARACLUDE [Suspect]
     Active Substance: ENTECAVIR
     Indication: LIVER DISORDER
     Dosage: 0.5 MG, QD
     Route: 065

REACTIONS (2)
  - Insomnia [Unknown]
  - Malaise [Unknown]
